FAERS Safety Report 21262974 (Version 2)
Quarter: 2022Q3

REPORT INFORMATION
  Report Type: Report from Study
  Country: KR (occurrence: KR)
  Receive Date: 20220828
  Receipt Date: 20220913
  Transmission Date: 20221026
  Serious: Yes (Hospitalization, Other)
  Sender: FDA-Public Use
  Company Number: KR-NOVARTISPH-NVSC2021KR296413

PATIENT
  Age: 40 Year
  Sex: Female

DRUGS (40)
  1. KISQALI [Suspect]
     Active Substance: RIBOCICLIB
     Indication: Breast cancer metastatic
     Dosage: 600 MG, QD
     Route: 048
     Dates: start: 20211118, end: 20211209
  2. KISQALI [Suspect]
     Active Substance: RIBOCICLIB
     Dosage: 600 MG
     Route: 048
     Dates: start: 20211217, end: 20220107
  3. KISQALI [Suspect]
     Active Substance: RIBOCICLIB
     Dosage: 600 MG
     Route: 048
     Dates: start: 20220114, end: 20220204
  4. KISQALI [Suspect]
     Active Substance: RIBOCICLIB
     Dosage: 600 MG
     Route: 048
     Dates: start: 20220211, end: 20220304
  5. KISQALI [Suspect]
     Active Substance: RIBOCICLIB
     Dosage: 600 MG
     Route: 048
     Dates: start: 20220311, end: 20220401
  6. KISQALI [Suspect]
     Active Substance: RIBOCICLIB
     Dosage: 600 MG
     Route: 048
     Dates: start: 20220408, end: 20220429
  7. MUCOSTEN [Concomitant]
     Indication: Pleural effusion
     Dosage: 900 MG (10%) QD
     Route: 042
     Dates: start: 20211118, end: 20211203
  8. BRETRA [Concomitant]
     Indication: Breast cancer
     Dosage: 2.5 MG, QD
     Route: 048
     Dates: start: 20211118
  9. COUGH SYRUP [Concomitant]
     Active Substance: DEXTROMETHORPHAN HYDROBROMIDE\GUAIFENESIN
     Indication: Cough
     Dosage: 60 ML, QD
     Route: 048
     Dates: start: 20211118
  10. DESOWEN [Concomitant]
     Active Substance: DESONIDE
     Indication: Prophylaxis
     Dosage: 120 ML (LOTION, SKIN) (LAST DOSE DATE 25-APR-2022)
     Route: 065
     Dates: start: 20211201
  11. LACTICARE [Concomitant]
     Indication: Prophylaxis
     Dosage: (LOTION 1 BT/DAY) (23-MAY-2022)
     Route: 065
     Dates: start: 20211127
  12. XGEVA [Concomitant]
     Active Substance: DENOSUMAB
     Indication: Breast cancer
     Dosage: 120 MG, QD
     Route: 058
     Dates: start: 20211118, end: 20211118
  13. XGEVA [Concomitant]
     Active Substance: DENOSUMAB
     Dosage: 120 MG, QD
     Route: 058
     Dates: start: 20211218, end: 20211218
  14. XGEVA [Concomitant]
     Active Substance: DENOSUMAB
     Dosage: 120 MG, QD
     Route: 058
     Dates: start: 20220114, end: 20220114
  15. XGEVA [Concomitant]
     Active Substance: DENOSUMAB
     Dosage: 120 MG, QD
     Route: 058
     Dates: start: 20220211, end: 20220211
  16. XGEVA [Concomitant]
     Active Substance: DENOSUMAB
     Dosage: 120 MG, QD
     Route: 058
     Dates: start: 20220311, end: 20220311
  17. XGEVA [Concomitant]
     Active Substance: DENOSUMAB
     Dosage: 120 MG, QD
     Route: 058
     Dates: start: 20220408, end: 20220408
  18. ERDOSTEINE [Concomitant]
     Active Substance: ERDOSTEINE
     Indication: Cough
     Dosage: 900 MG, QD
     Route: 048
     Dates: start: 20211118, end: 20211218
  19. MEGACE F [Concomitant]
     Indication: Prophylaxis
     Dosage: 800 MG (SUSP)
     Route: 048
     Dates: start: 20211217
  20. DUPHALAC [Concomitant]
     Active Substance: LACTULOSE
     Indication: Haemorrhoids
     Dosage: 15 ML, QD
     Route: 048
     Dates: start: 20211203
  21. XYZAL [Concomitant]
     Active Substance: LEVOCETIRIZINE DIHYDROCHLORIDE
     Indication: Rash
     Dosage: 5 MG, QD
     Route: 048
     Dates: start: 20211130, end: 20211220
  22. ATIVAN [Concomitant]
     Active Substance: LORAZEPAM
     Indication: Insomnia
     Dosage: 1 MG, QD
     Route: 042
     Dates: start: 20211217, end: 20211220
  23. MAGNESIUM HYDROXIDE [Concomitant]
     Active Substance: MAGNESIUM HYDROXIDE
     Indication: Prophylaxis
     Dosage: 1500 MG, QD
     Route: 048
     Dates: start: 20211130
  24. OXYCODONE HYDROCHLORIDE [Concomitant]
     Active Substance: OXYCODONE HYDROCHLORIDE
     Indication: Prophylaxis
     Dosage: 15 MG, QD
     Route: 048
     Dates: start: 20211118, end: 20220421
  25. IPRATROPIUM BROMIDE [Concomitant]
     Active Substance: IPRATROPIUM BROMIDE
     Indication: Cough
     Dosage: 1000 UG, QD (NEBULIZER)
     Route: 065
     Dates: start: 20211118, end: 20211203
  26. ALBUTEROL SULFATE [Concomitant]
     Active Substance: ALBUTEROL SULFATE
     Indication: Cough
     Dosage: 5 ML QD (NEBULIZER)
     Route: 065
     Dates: start: 20211118, end: 20211203
  27. RECTOGESIC [Concomitant]
     Indication: Haemorrhoids
     Dosage: 30 G, QD (SKIN)
     Route: 065
     Dates: start: 20211124, end: 20211129
  28. ACETYLCYSTEINE [Concomitant]
     Active Substance: ACETYLCYSTEINE
     Indication: Pleural effusion
     Dosage: 600 MG, QD
     Route: 042
     Dates: start: 20220131, end: 20220202
  29. DICAMAX D PLUS [Concomitant]
     Indication: Prophylaxis
     Dosage: 1 DOSAGE FORM, QD
     Route: 048
     Dates: start: 20220114, end: 20220407
  30. AMLODIPINE OROTATE [Concomitant]
     Active Substance: AMLODIPINE OROTATE
     Indication: Prophylaxis
     Dosage: 5 ML, QD
     Route: 065
     Dates: start: 20220212, end: 20220215
  31. LASIX [Concomitant]
     Active Substance: FUROSEMIDE
     Indication: Pleural effusion
     Dosage: 20 MG, QD (INJECTION)
     Route: 042
     Dates: start: 20220324, end: 20220324
  32. LASIX [Concomitant]
     Active Substance: FUROSEMIDE
     Indication: Pneumonia
     Dosage: 20 MG, QD (INJECTION)
     Route: 042
     Dates: start: 20220419, end: 20220419
  33. LASIX [Concomitant]
     Active Substance: FUROSEMIDE
     Dosage: 40 MG, QD (TABLET)
     Route: 048
     Dates: start: 20220401
  34. ZOLADEX [Concomitant]
     Active Substance: GOSERELIN ACETATE
     Indication: Breast cancer
     Dosage: 3.6 MG, QD
     Route: 058
     Dates: start: 20211118, end: 20211118
  35. ZOLADEX [Concomitant]
     Active Substance: GOSERELIN ACETATE
     Dosage: 3.6 MG, QD
     Route: 058
     Dates: start: 20211218, end: 20211218
  36. ZOLADEX [Concomitant]
     Active Substance: GOSERELIN ACETATE
     Dosage: 3.6 MG, QD
     Route: 058
     Dates: start: 20220114, end: 20220114
  37. ZOLADEX [Concomitant]
     Active Substance: GOSERELIN ACETATE
     Dosage: 3.6 MG, QD
     Route: 058
     Dates: start: 20220211, end: 20220211
  38. ZOLADEX [Concomitant]
     Active Substance: GOSERELIN ACETATE
     Dosage: 3.6 MG, QD
     Route: 058
     Dates: start: 20220311, end: 20220311
  39. ZOLADEX [Concomitant]
     Active Substance: GOSERELIN ACETATE
     Dosage: 3.6 MG, QD
     Route: 058
     Dates: start: 20220408, end: 20220408
  40. DOPRAMINE [Concomitant]
     Indication: Prophylaxis
     Dosage: 800 MG, QD
     Route: 042
     Dates: start: 20220419, end: 20220419

REACTIONS (5)
  - Vomiting [Recovered/Resolved]
  - Pneumonia [Recovered/Resolved]
  - Dyspnoea [Unknown]
  - Nausea [Not Recovered/Not Resolved]
  - Limb discomfort [Not Recovered/Not Resolved]

NARRATIVE: CASE EVENT DATE: 20211118
